FAERS Safety Report 8523363-4 (Version None)
Quarter: 2012Q3

REPORT INFORMATION
  Report Type: 
  Country: None (occurrence: None)
  Receive Date: 20120709
  Receipt Date: 20120626
  Transmission Date: 20120928
  Serious: Yes (Hospitalization, Other)
  Sender: FDA-Public Use
  Company Number: 2012MA008053

PATIENT
  Sex: Female

DRUGS (1)
  1. DONEPEZIL HYDROCHLORIDE [Suspect]
     Dosage: 10 MG, QD, PO
     Route: 048

REACTIONS (2)
  - ELECTROCARDIOGRAM QT PROLONGED [None]
  - BRADYCARDIA [None]
